FAERS Safety Report 16736870 (Version 1)
Quarter: 2019Q3

REPORT INFORMATION
  Report Type: Spontaneous
  Country: FR (occurrence: FR)
  Receive Date: 20190823
  Receipt Date: 20190823
  Transmission Date: 20191005
  Serious: Yes (Hospitalization)
  Sender: FDA-Public Use
  Company Number: FR-ANIPHARMA-2019-FR-000190

PATIENT
  Age: 67 Year
  Sex: Male
  Weight: 72 kg

DRUGS (3)
  1. CASODEX [Suspect]
     Active Substance: BICALUTAMIDE
     Indication: PROSTATE CANCER
     Dosage: 1 DF DAILY
     Route: 048
     Dates: start: 20190405, end: 20190505
  2. NEBIVOLOL. [Suspect]
     Active Substance: NEBIVOLOL
     Dosage: 1 DF DAILY
     Route: 048
     Dates: start: 2009, end: 20190626
  3. VALSARTAN. [Concomitant]
     Active Substance: VALSARTAN
     Dosage: UNK
     Route: 065

REACTIONS (11)
  - Dry skin [Recovering/Resolving]
  - Abdominal pain [Recovered/Resolved]
  - Decreased appetite [Recovered/Resolved]
  - Hair growth abnormal [Not Recovered/Not Resolved]
  - Hypotension [Recovered/Resolved with Sequelae]
  - Diarrhoea [Recovered/Resolved]
  - Bradycardia [Recovered/Resolved with Sequelae]
  - Palpitations [Recovering/Resolving]
  - Breast pain [Not Recovered/Not Resolved]
  - Dizziness [Recovering/Resolving]
  - Somnolence [Recovered/Resolved]

NARRATIVE: CASE EVENT DATE: 201904
